FAERS Safety Report 11106947 (Version 1)
Quarter: 2015Q2

REPORT INFORMATION
  Report Type: Spontaneous
  Country: US (occurrence: US)
  Receive Date: 20150512
  Receipt Date: 20150512
  Transmission Date: 20150821
  Serious: No
  Sender: FDA-Public Use
  Company Number: US-LEO PHARMA-233903

PATIENT
  Sex: Male

DRUGS (1)
  1. PICATO [Suspect]
     Active Substance: INGENOL MEBUTATE
     Indication: PRODUCT USED FOR UNKNOWN INDICATION
     Dates: start: 20150330, end: 20150401

REACTIONS (4)
  - Insomnia [Not Recovered/Not Resolved]
  - Application site erythema [Unknown]
  - Application site exfoliation [Unknown]
  - Application site pruritus [Not Recovered/Not Resolved]
